FAERS Safety Report 8968277 (Version 1)
Quarter: 2012Q4

REPORT INFORMATION
  Report Type: Spontaneous
  Country: IN (occurrence: None)
  Receive Date: 20121210
  Receipt Date: 20121210
  Transmission Date: 20130627
  Serious: Yes (Other)
  Sender: FDA-Public Use
  Company Number: AUR-APL-2012-05187

PATIENT
  Age: 43 Year
  Sex: Female

DRUGS (1)
  1. AMPICILLIN [Suspect]
     Indication: TOOTHACHE

REACTIONS (6)
  - Pyrexia [None]
  - Myalgia [None]
  - Arthralgia [None]
  - Dermatitis [None]
  - Rash pruritic [None]
  - Eosinophilia [None]
